FAERS Safety Report 21562200 (Version 1)
Quarter: 2022Q4

REPORT INFORMATION
  Report Type: Report from Study
  Country: US (occurrence: US)
  Receive Date: 20221107
  Receipt Date: 20221107
  Transmission Date: 20230113
  Serious: Yes (Other)
  Sender: FDA-Public Use
  Company Number: US-ALLERGAN-2236071US

PATIENT

DRUGS (18)
  1. BOTULINUM TOXIN TYPE A [Suspect]
     Active Substance: BOTULINUM TOXIN TYPE A
     Indication: Headache
     Dosage: UNK UNK, , SINGLE
     Route: 065
  2. SUMATRIPTAN [Suspect]
     Active Substance: SUMATRIPTAN
     Indication: Product used for unknown indication
     Dosage: UNK
     Route: 065
  3. LEXAPRO [Suspect]
     Active Substance: ESCITALOPRAM OXALATE
     Indication: Product used for unknown indication
     Dosage: UNK, 1.5 TABLET EVERY DAY
     Route: 048
     Dates: start: 20220331
  4. UBRELVY [Suspect]
     Active Substance: UBROGEPANT
     Indication: Headache
     Dosage: 100 MG PRN
     Route: 048
     Dates: start: 20220603
  5. AZITHROMYCIN [Suspect]
     Active Substance: AZITHROMYCIN
     Indication: Product used for unknown indication
     Dosage: 250 MG
     Route: 048
     Dates: start: 20210806
  6. EMGALITY [Suspect]
     Active Substance: GALCANEZUMAB-GNLM
     Indication: Product used for unknown indication
     Dosage: UNK
     Route: 058
     Dates: start: 202206
  7. KEPPRA [Suspect]
     Active Substance: LEVETIRACETAM
     Indication: Product used for unknown indication
     Dosage: 1 DF, BID, 1 TABLET (500 MG) 2 TIMES A DAY
     Route: 048
     Dates: start: 20220422
  8. LEVOTHYROXINE [Suspect]
     Active Substance: LEVOTHYROXINE
     Indication: Product used for unknown indication
     Dosage: 1 DF, QD,1 TABLET (75 MCG) EVERY DAY
     Route: 048
     Dates: start: 20220328
  9. NURTEC ODT [Suspect]
     Active Substance: RIMEGEPANT SULFATE
     Indication: Product used for unknown indication
     Dosage: UNK
     Route: 065
     Dates: start: 20220923
  10. RIZATRIPTAN [Suspect]
     Active Substance: RIZATRIPTAN
     Indication: Migraine
     Dosage: 1 DF PRN
     Route: 065
     Dates: start: 20220803
  11. TYLENOL [Suspect]
     Active Substance: ACETAMINOPHEN
     Indication: Pyrexia
     Dosage: 1 DF, 6D 1 DF, 1 TAB EVERY 4 HRS AS NEEDED
     Route: 048
     Dates: start: 20210811, end: 20220811
  12. IBUPROFEN [Suspect]
     Active Substance: IBUPROFEN
     Indication: Pain
     Dosage: 1 DF, QID1 TABLET EVERY 6 HOURS AS NEEDED WITH FOOD OR MILK
     Route: 048
     Dates: start: 20210811, end: 20220811
  13. SYNTHROID [Suspect]
     Active Substance: LEVOTHYROXINE SODIUM
     Indication: Product used for unknown indication
     Dosage: 88 UG, 88 MICROGRAM EVERY DAY; DAILY WITH 1.5 DOSES ON SUNDAY
     Route: 048
     Dates: start: 20181204, end: 20221006
  14. ORTHO MICRONOR [Suspect]
     Active Substance: NORETHINDRONE
     Indication: Product used for unknown indication
     Dosage: 1 DF, QD 1 TABLET EVERY DAY
     Route: 048
     Dates: start: 20210923, end: 20221006
  15. NORTRIPTYLINE HYDROCHLORIDE [Suspect]
     Active Substance: NORTRIPTYLINE HYDROCHLORIDE
     Indication: Product used for unknown indication
     Dosage: UNK
     Route: 065
  16. TOPAMAX [Suspect]
     Active Substance: TOPIRAMATE
     Indication: Product used for unknown indication
     Dosage: UNK
     Route: 065
  17. IMITREX [Concomitant]
     Active Substance: SUMATRIPTAN SUCCINATE
     Indication: Product used for unknown indication
     Dosage: UNK
     Route: 065
  18. RIZATRIPTAN [Concomitant]
     Active Substance: RIZATRIPTAN
     Indication: Product used for unknown indication
     Dosage: UNK
     Route: 065

REACTIONS (22)
  - Loss of consciousness [Not Recovered/Not Resolved]
  - Hyperprolactinaemia [Not Recovered/Not Resolved]
  - Hypothyroidism [Not Recovered/Not Resolved]
  - Arteriovenous malformation [Not Recovered/Not Resolved]
  - Syncope [Not Recovered/Not Resolved]
  - Major depression [Not Recovered/Not Resolved]
  - Depression [Not Recovered/Not Resolved]
  - Feeling cold [Unknown]
  - Staring [Unknown]
  - Obsessive-compulsive disorder [Not Recovered/Not Resolved]
  - Cognitive disorder [Unknown]
  - Migraine [Unknown]
  - Hypotonia [Unknown]
  - Tachycardia [Not Recovered/Not Resolved]
  - Tremor [Unknown]
  - Anxiety [Not Recovered/Not Resolved]
  - Malaise [Unknown]
  - Dizziness [Unknown]
  - Nausea [Unknown]
  - Migraine without aura [Not Recovered/Not Resolved]
  - Migraine with aura [Not Recovered/Not Resolved]
  - Exposure during pregnancy [Unknown]
